FAERS Safety Report 10003723 (Version 1)
Quarter: 2014Q1

REPORT INFORMATION
  Report Type: Spontaneous
  Country: US (occurrence: US)
  Receive Date: 20140312
  Receipt Date: 20140312
  Transmission Date: 20141002
  Serious: Yes (Congenital Anomaly)
  Sender: FDA-Public Use
  Company Number: US-ABBVIE-13P-163-1069979-00

PATIENT
  Sex: 0

DRUGS (1)
  1. DEPAKOTE [Suspect]
     Indication: MATERNAL EXPOSURE TIMING UNSPECIFIED
     Route: 064

REACTIONS (3)
  - Pulmonary valve stenosis congenital [Unknown]
  - Congenital anomaly [Unknown]
  - Foetal exposure during pregnancy [Unknown]
